FAERS Safety Report 18922096 (Version 1)
Quarter: 2021Q1

REPORT INFORMATION
  Report Type: Spontaneous
  Country: US (occurrence: US)
  Receive Date: 20210220
  Receipt Date: 20210220
  Transmission Date: 20210420
  Serious: Yes (Death)
  Sender: FDA-Public Use
  Company Number: None

PATIENT
  Age: 74 Year
  Sex: Female
  Weight: 49.5 kg

DRUGS (14)
  1. KEYTRUDA [Suspect]
     Active Substance: PEMBROLIZUMAB
     Indication: LUNG CARCINOMA CELL TYPE UNSPECIFIED STAGE IV
     Dates: start: 20201223, end: 20201223
  2. MS CONTIN [Concomitant]
     Active Substance: MORPHINE SULFATE
  3. FENTANYL TRANSDERMAL SYSTEM [Concomitant]
     Active Substance: FENTANYL
  4. LIQUID MORPHINE [Concomitant]
     Active Substance: MORPHINE
  5. LASIX [Concomitant]
     Active Substance: FUROSEMIDE
  6. XANAX [Concomitant]
     Active Substance: ALPRAZOLAM
  7. AMBIEN [Concomitant]
     Active Substance: ZOLPIDEM TARTRATE
  8. AMBIEN [Concomitant]
     Active Substance: ZOLPIDEM TARTRATE
  9. OMEPRAZOLE. [Concomitant]
     Active Substance: OMEPRAZOLE
  10. OXYCODONE [Concomitant]
     Active Substance: OXYCODONE
  11. LORAZEPAM. [Concomitant]
     Active Substance: LORAZEPAM
  12. SPIRONOLACTONE. [Concomitant]
     Active Substance: SPIRONOLACTONE
  13. CARVEDIOLOL, 3.125MG AUROBINDO [Concomitant]
     Active Substance: CARVEDILOL
  14. FLUCONAZOLE. [Concomitant]
     Active Substance: FLUCONAZOLE

REACTIONS (5)
  - Dysphagia [None]
  - Pain [None]
  - Quality of life decreased [None]
  - General physical health deterioration [None]
  - Gait inability [None]

NARRATIVE: CASE EVENT DATE: 20201223
